FAERS Safety Report 5923257-4 (Version None)
Quarter: 2008Q4

REPORT INFORMATION
  Report Type: 
  Country: None (occurrence: None)
  Receive Date: 20081015
  Receipt Date: 20081003
  Transmission Date: 20090506
  Serious: Yes (Other)
  Sender: FDA-Public Use
  Company Number: 2008SP020364

PATIENT
  Age: 68 Year
  Sex: Female

DRUGS (4)
  1. MIRALAX [Suspect]
     Indication: DRUG USE FOR UNKNOWN INDICATION
     Dosage: ;QD;PO
     Route: 048
  2. MIRALAX [Suspect]
     Indication: OFF LABEL USE
     Dosage: ;QD;PO
     Route: 048
  3. ANTIDEPRESSANT [Concomitant]
  4. ARTHRITIS MEDICATION [Concomitant]

REACTIONS (1)
  - FAECES DISCOLOURED [None]
